FAERS Safety Report 5357955-0 (Version None)
Quarter: 2007Q2

REPORT INFORMATION
  Report Type: 
  Country: None (occurrence: None)
  Receive Date: 20070612
  Receipt Date: 20070605
  Transmission Date: 20071010
  Serious: Yes (Hospitalization)
  Sender: FDA-Public Use
  Company Number: 163-21880-07060213

PATIENT
  Age: 79 Year
  Sex: Male
  Weight: 82.2 kg

DRUGS (1)
  1. REVLIMID [Suspect]
     Indication: PROSTATE CANCER
     Dosage: 25 MG, DAILY X21 DAYS, ORAL
     Route: 048
     Dates: start: 20070516, end: 20070601

REACTIONS (5)
  - CARDIOMEGALY [None]
  - CYANOSIS [None]
  - DYSPNOEA [None]
  - FLUID OVERLOAD [None]
  - PLEURAL EFFUSION [None]
